FAERS Safety Report 5778765-6 (Version None)
Quarter: 2008Q2

REPORT INFORMATION
  Report Type: 
  Country: None (occurrence: None)
  Receive Date: 20080619
  Receipt Date: 20070730
  Transmission Date: 20081010
  Serious: No
  Sender: FDA-Public Use
  Company Number: US-BRISTOL-MYERS SQUIBB COMPANY-13861513

PATIENT
  Age: 53 Year
  Sex: Female

DRUGS (10)
  1. MITOMYCIN [Suspect]
     Indication: SQUAMOUS CELL CARCINOMA
  2. XELODA [Suspect]
     Indication: SQUAMOUS CELL CARCINOMA
     Route: 048
     Dates: start: 20070615, end: 20070615
  3. RADIATION THERAPY [Suspect]
     Indication: SQUAMOUS CELL CARCINOMA
  4. FOLIC ACID [Concomitant]
     Dates: end: 20070619
  5. VALIUM [Concomitant]
  6. VICODIN [Concomitant]
  7. AQUAPHOR [Concomitant]
  8. IRON [Concomitant]
  9. MAGIC MOUTHWASH [Concomitant]
  10. ACIDOPHILUS [Concomitant]

REACTIONS (5)
  - DIARRHOEA [None]
  - DRY MOUTH [None]
  - FEELING HOT [None]
  - RED BLOOD CELL COUNT DECREASED [None]
  - VAGINAL MUCOSAL BLISTERING [None]
